FAERS Safety Report 17828506 (Version 5)
Quarter: 2022Q2

REPORT INFORMATION
  Report Type: Spontaneous
  Country: US (occurrence: US)
  Receive Date: 20200527
  Receipt Date: 20220427
  Transmission Date: 20220721
  Serious: No
  Sender: FDA-Public Use
  Company Number: US-PFIZER INC-2020208353

PATIENT
  Age: 42 Year
  Sex: Female

DRUGS (4)
  1. LYRICA [Suspect]
     Active Substance: PREGABALIN
     Indication: Fibromyalgia
     Dosage: UNK
  2. LYRICA [Suspect]
     Active Substance: PREGABALIN
     Indication: Depression
  3. LYRICA [Suspect]
     Active Substance: PREGABALIN
     Indication: Pain
  4. LYRICA [Suspect]
     Active Substance: PREGABALIN
     Indication: Confusional state

REACTIONS (4)
  - Therapeutic response unexpected [Unknown]
  - Ex-tobacco user [Unknown]
  - Feeling abnormal [Unknown]
  - Illness [Unknown]
